FAERS Safety Report 7904002-X (Version None)
Quarter: 2011Q4

REPORT INFORMATION
  Report Type: 
  Country: None (occurrence: None)
  Receive Date: 20111109
  Receipt Date: 20111103
  Transmission Date: 20120403
  Serious: Yes (Hospitalization)
  Sender: FDA-Public Use
  Company Number: US-ALEXION-A201101576

PATIENT
  Sex: Female

DRUGS (18)
  1. LEUCOVORIN CALCIUM [Concomitant]
     Dosage: 5 MG, 3 TIMES QWK
  2. ULTRAM [Concomitant]
     Indication: FIBROMYALGIA
     Dosage: 100 MG, BID PRN
  3. RITUXAN [Concomitant]
     Dosage: UNK, QUARTERLY
     Route: 042
  4. SOLIRIS [Suspect]
     Dosage: 900 MG, Q2W
     Route: 042
     Dates: start: 20100301
  5. PREDNISONE [Concomitant]
     Dosage: 10 MG, QD
     Route: 048
  6. FOLIC ACID [Concomitant]
     Dosage: 1 MG, QD
  7. OS-CAL [Concomitant]
     Dosage: UNK
  8. COLACE [Concomitant]
     Dosage: UNK
  9. ACETAMINOPHEN [Concomitant]
     Dosage: UNK
  10. EFFEXOR XR [Concomitant]
     Dosage: 37.5 MG AND 7.5 MG, QD
  11. TRAZODONE HYDROCHLORIDE [Concomitant]
     Dosage: UNK
  12. METAMUCIL-2 [Concomitant]
     Dosage: UNK
  13. POTASSIUM CHLORIDE [Concomitant]
     Dosage: 60 MEQ, QD PRN
  14. DETROL [Concomitant]
     Indication: INCONTINENCE
     Dosage: UNK
     Dates: start: 20110401
  15. SOLIRIS [Suspect]
     Indication: PAROXYSMAL NOCTURNAL HAEMOGLOBINURIA
     Dosage: 600 MG, QW
     Route: 042
     Dates: start: 20100128, end: 20100101
  16. CLONAZEPAM [Concomitant]
     Dosage: UNK
  17. PLAQUENIL [Concomitant]
     Dosage: 200 MG, BID
  18. METHOTREXATE [Concomitant]
     Dosage: 20 MG, QW

REACTIONS (5)
  - CONDITION AGGRAVATED [None]
  - FALL [None]
  - PNEUMONIA [None]
  - LUMBAR SPINAL STENOSIS [None]
  - INFECTION [None]
